FAERS Safety Report 22300390 (Version 6)
Quarter: 2023Q4

REPORT INFORMATION
  Report Type: Report from Study
  Country: AR (occurrence: AR)
  Receive Date: 20230509
  Receipt Date: 20231121
  Transmission Date: 20240109
  Serious: Yes (Life-Threatening, Hospitalization, Other)
  Sender: FDA-Public Use
  Company Number: AR-002147023-NVSC2023AR098460

PATIENT

DRUGS (4)
  1. RUXOLITINIB [Suspect]
     Active Substance: RUXOLITINIB
     Indication: Myelofibrosis
     Dosage: 40 MG
     Route: 065
     Dates: start: 20230213
  2. RUXOLITINIB [Suspect]
     Active Substance: RUXOLITINIB
     Dosage: 20 MG, QD
     Route: 065
     Dates: start: 20230213, end: 20230319
  3. RUXOLITINIB [Suspect]
     Active Substance: RUXOLITINIB
     Dosage: 40 MG
     Route: 065
  4. RUXOLITINIB [Suspect]
     Active Substance: RUXOLITINIB
     Dosage: 5 MG, Q12H (10 MG, QD)
     Route: 048
     Dates: start: 20230710

REACTIONS (15)
  - Anaemia [Unknown]
  - Platelet count decreased [Recovering/Resolving]
  - Dizziness [Recovering/Resolving]
  - Syncope [Unknown]
  - Fall [Recovered/Resolved]
  - Asthenia [Recovering/Resolving]
  - Haematocrit decreased [Unknown]
  - Drug ineffective [Unknown]
  - Intestinal haemorrhage [Recovered/Resolved]
  - Balance disorder [Unknown]
  - Red blood cell count decreased [Unknown]
  - Melanocytic naevus [Unknown]
  - Gastrointestinal angiodysplasia [Unknown]
  - Inappropriate schedule of product administration [Unknown]
  - Thrombocytopenia [Unknown]

NARRATIVE: CASE EVENT DATE: 20230213
